FAERS Safety Report 17484547 (Version 1)
Quarter: 2020Q1

REPORT INFORMATION
  Report Type: Spontaneous
  Country: NO (occurrence: NO)
  Receive Date: 20200302
  Receipt Date: 20200302
  Transmission Date: 20200409
  Serious: Yes (Life-Threatening, Hospitalization, Disabling, Other)
  Sender: FDA-Public Use
  Company Number: NO-INDIVIOR US-INDV-123754-2020

PATIENT
  Age: 36 Year
  Sex: Male
  Weight: 101 kg

DRUGS (4)
  1. SUBUTEX [Suspect]
     Active Substance: BUPRENORPHINE HYDROCHLORIDE
     Indication: REHABILITATION THERAPY
     Dosage: 32 MILLIGRAM, QD
     Route: 065
     Dates: start: 20180301
  2. SUBOXONE [Suspect]
     Active Substance: BUPRENORPHINE HYDROCHLORIDE\NALOXONE HYDROCHLORIDE
     Indication: PRODUCT USED FOR UNKNOWN INDICATION
     Dosage: UNK
     Route: 065
  3. CANNABIDIOL [Concomitant]
     Active Substance: CANNABIDIOL
     Indication: PRODUCT USED FOR UNKNOWN INDICATION
     Dosage: UNK
     Route: 065
  4. SUBUTEX [Suspect]
     Active Substance: BUPRENORPHINE HYDROCHLORIDE
     Dosage: UNK
     Route: 065
     Dates: start: 20180301

REACTIONS (8)
  - Hormone level abnormal [Not Recovered/Not Resolved]
  - Headache [Not Recovered/Not Resolved]
  - Libido decreased [Not Recovered/Not Resolved]
  - Indifference [Recovering/Resolving]
  - Weight increased [Not Recovered/Not Resolved]
  - Arthritis [Not Recovered/Not Resolved]
  - Asthma [Recovering/Resolving]
  - Prescribed overdose [Not Recovered/Not Resolved]

NARRATIVE: CASE EVENT DATE: 20180301
